FAERS Safety Report 9520799 (Version 1)
Quarter: 2013Q1

REPORT INFORMATION
  Report Type: Spontaneous
  Country: US (occurrence: None)
  Receive Date: 20130305
  Receipt Date: 20130305
  Transmission Date: 20140127
  Serious: Yes (Hospitalization)
  Sender: FDA-Public Use
  Company Number: 163-21880-12032244

PATIENT
  Age: 78 Year
  Sex: Male

DRUGS (1)
  1. REVLIMID [Suspect]
     Indication: PLASMA CELL MYELOMA
     Dosage: 25 MG, DAILY X 21 DAYS, REPEAT Q28 DAYS, PO
     Route: 048
     Dates: start: 20111028

REACTIONS (4)
  - Pneumonia [None]
  - Bone density decreased [None]
  - Neuropathy peripheral [None]
  - Pain [None]
